FAERS Safety Report 10754540 (Version 1)
Quarter: 2015Q1

REPORT INFORMATION
  Report Type: Spontaneous
  Country: US (occurrence: US)
  Receive Date: 20150202
  Receipt Date: 20150202
  Transmission Date: 20150721
  Serious: No
  Sender: FDA-Public Use
  Company Number: US-009507513-1501USA012120

PATIENT
  Age: 37 Year
  Sex: Male

DRUGS (1)
  1. GRASTEK [Suspect]
     Active Substance: PHLEUM PRATENSE POLLEN
     Indication: SEASONAL ALLERGY
     Dosage: 2800 BAU/ONCE DAILY; STRENGTH: 2800 BAU
     Route: 060
     Dates: start: 20150113

REACTIONS (1)
  - Tongue injury [Unknown]

NARRATIVE: CASE EVENT DATE: 201501
